FAERS Safety Report 5919555-0 (Version None)
Quarter: 2008Q4

REPORT INFORMATION
  Report Type: 
  Country: None (occurrence: None)
  Receive Date: 20081015
  Receipt Date: 20071009
  Transmission Date: 20090506
  Serious: No
  Sender: FDA-Public Use
  Company Number: US-BRISTOL-MYERS SQUIBB COMPANY-13934609

PATIENT
  Age: 37 Year
  Sex: Male

DRUGS (2)
  1. KENALOG-40 [Suspect]
     Dates: start: 20070927
  2. NASONEX [Concomitant]

REACTIONS (3)
  - DIPLOPIA [None]
  - NAUSEA [None]
  - VOMITING [None]
